FAERS Safety Report 8606802-X (Version None)
Quarter: 2012Q3

REPORT INFORMATION
  Report Type: 
  Country: None (occurrence: None)
  Receive Date: 20120820
  Receipt Date: 20120810
  Transmission Date: 20120928
  Serious: Yes (Other)
  Sender: FDA-Public Use
  Company Number: TW-JHP PHARMACEUTICALS, LLC-JHP201200408

PATIENT
  Age: 19 Year
  Sex: Female

DRUGS (1)
  1. KETALAR [Suspect]
     Indication: DRUG ABUSE
     Dosage: 6 G, DAILY
     Route: 055

REACTIONS (3)
  - HYDRONEPHROSIS [None]
  - URETERIC STENOSIS [None]
  - CYSTITIS [None]
